FAERS Safety Report 16043882 (Version 2)
Quarter: 2019Q1

REPORT INFORMATION
  Report Type: Report from Study
  Country: US (occurrence: US)
  Receive Date: 20190306
  Receipt Date: 20190322
  Transmission Date: 20190418
  Serious: No
  Sender: FDA-Public Use
  Company Number: US-SA-2019SA056210

PATIENT
  Age: 29 Year
  Sex: Female

DRUGS (2)
  1. DUPILUMAB [Suspect]
     Active Substance: DUPILUMAB
     Indication: DERMATITIS ATOPIC
     Dosage: 600 MG, 1X
     Route: 058
     Dates: start: 201901, end: 201901
  2. DUPILUMAB [Suspect]
     Active Substance: DUPILUMAB
     Indication: ECZEMA
     Dosage: 300 MG, QOW
     Route: 058
     Dates: start: 2019

REACTIONS (12)
  - Dry eye [Unknown]
  - Therapeutic response decreased [Unknown]
  - Product dose omission [Unknown]
  - Eye irritation [Unknown]
  - Device issue [Unknown]
  - Erythema [Unknown]
  - Headache [Unknown]
  - Pruritus [Unknown]
  - Ocular discomfort [Unknown]
  - Skin irritation [Unknown]
  - Epistaxis [Unknown]
  - Eczema [Unknown]

NARRATIVE: CASE EVENT DATE: 2019
